FAERS Safety Report 4343593-5 (Version None)
Quarter: 2004Q2

REPORT INFORMATION
  Report Type: 
  Country: None (occurrence: None)
  Receive Date: 20040419
  Receipt Date: 20040407
  Transmission Date: 20050107
  Serious: Yes (Hospitalization)
  Sender: FDA-Public Use
  Company Number: US069804

PATIENT
  Age: 33 Year
  Sex: Male

DRUGS (6)
  1. ENBREL [Suspect]
     Indication: RHEUMATOID ARTHRITIS
     Dosage: 25 MG, 2 IN 1 WEEKS, SC
     Route: 058
     Dates: start: 20030602
  2. PREDNISONE [Concomitant]
  3. METHOTREXATE [Concomitant]
  4. VICODIN [Concomitant]
  5. FOLIC ACID [Concomitant]
  6. ACETAMINOPHEN [Concomitant]

REACTIONS (3)
  - HYPOTENSION [None]
  - PYREXIA [None]
  - RHEUMATOID ARTHRITIS [None]
